FAERS Safety Report 12971615 (Version 1)
Quarter: 2016Q4

REPORT INFORMATION
  Report Type: Spontaneous
  Country: NZ (occurrence: NZ)
  Receive Date: 20161123
  Receipt Date: 20161123
  Transmission Date: 20170207
  Serious: Yes (Hospitalization, Other)
  Sender: FDA-Public Use
  Company Number: NZ-ASTRAZENECA-2016SF23098

PATIENT
  Age: 57 Year
  Sex: Female

DRUGS (6)
  1. CHOLECALCIFEROL [Concomitant]
     Active Substance: CHOLECALCIFEROL
  2. FOLIC ACID. [Concomitant]
     Active Substance: FOLIC ACID
  3. ASPIRIN. [Concomitant]
     Active Substance: ASPIRIN
  4. BRILINTA [Suspect]
     Active Substance: TICAGRELOR
     Route: 048
  5. METHOTREXATE. [Concomitant]
     Active Substance: METHOTREXATE
  6. PREDNISONE. [Concomitant]
     Active Substance: PREDNISONE

REACTIONS (1)
  - Myocardial fibrosis [Unknown]
